FAERS Safety Report 5873787-9 (Version None)
Quarter: 2008Q3

REPORT INFORMATION
  Report Type: 
  Country: None (occurrence: None)
  Receive Date: 20080908
  Receipt Date: 20080901
  Transmission Date: 20090109
  Serious: Yes (Hospitalization)
  Sender: FDA-Public Use
  Company Number: DE-BRISTOL-MYERS SQUIBB COMPANY-14281018

PATIENT
  Age: 59 Year
  Sex: Male
  Weight: 79 kg

DRUGS (3)
  1. CETUXIMAB [Suspect]
     Indication: NON-SMALL CELL LUNG CANCER
     Dosage: STRENGTH: 2MG/ML TAKEN FROM 19-JUN-2008 TO 25-JUN-2008 DOSE REDUCED FROM 17-JUL-2008
     Route: 042
     Dates: start: 20080619
  2. CARBOPLATIN [Suspect]
     Indication: NON-SMALL CELL LUNG CANCER
     Dosage: AUC5.
     Route: 042
     Dates: start: 20080619
  3. GEMCITABINE [Suspect]
     Indication: NON-SMALL CELL LUNG CANCER
     Dosage: TAKEN FROM 19-JUN-2008 TO 25-JUN-2008 DOSE REDUCED ON 17-JUL-2008
     Route: 042
     Dates: start: 20080119

REACTIONS (1)
  - PNEUMONIA [None]
